FAERS Safety Report 4591686-X (Version None)
Quarter: 2005Q1

REPORT INFORMATION
  Report Type: 
  Country: None (occurrence: None)
  Receive Date: 20050223
  Receipt Date: 20050223
  Transmission Date: 20050727
  Serious: Yes (Hospitalization)
  Sender: FDA-Public Use
  Company Number: None

PATIENT
  Age: 43 Year
  Sex: Male
  Weight: 59.8748 kg

DRUGS (9)
  1. OXALIPLATIN [Suspect]
     Indication: COLON CANCER METASTATIC
     Dosage: 130 MG/M2 Q 3 WK
     Dates: start: 20050217
  2. DOCETAXEL [Suspect]
     Indication: COLON CANCER METASTATIC
     Dosage: 40 MG/M2 Q WK 2 OF 3
     Dates: start: 20050217
  3. ACIPHEX [Concomitant]
  4. ALUMINUM HYDROXIDE AND MAGNESIUM TRISILICATE [Concomitant]
  5. VIT C [Concomitant]
  6. PERCOCET [Concomitant]
  7. M.V.I. [Concomitant]
  8. DECADRON [Concomitant]
  9. ANZEMET [Concomitant]

REACTIONS (3)
  - ANAEMIA [None]
  - NAUSEA [None]
  - VOMITING [None]
